FAERS Safety Report 4836474-1 (Version None)
Quarter: 2005Q4

REPORT INFORMATION
  Report Type: 
  Country: None (occurrence: None)
  Receive Date: 20051118
  Receipt Date: 20051110
  Transmission Date: 20060501
  Serious: Yes (Other)
  Sender: FDA-Public Use
  Company Number: 2005108648

PATIENT
  Age: 55 Year
  Sex: Male

DRUGS (2)
  1. LIPITOR [Suspect]
     Indication: HYPERLIPIDAEMIA
     Dosage: 10 MG (1 IN 1 D), ORAL
     Route: 048
     Dates: start: 20050518, end: 20050701
  2. NORVASC [Suspect]
     Indication: HYPERTENSION
     Dosage: 5 MG (1 IN 1 D), ORAL
     Route: 048
     Dates: start: 20050518, end: 20050916

REACTIONS (4)
  - ASTHENIA [None]
  - MALAISE [None]
  - MYALGIA [None]
  - MYOSITIS [None]
